FAERS Safety Report 15016838 (Version 2)
Quarter: 2018Q2

REPORT INFORMATION
  Report Type: Spontaneous
  Country: JP (occurrence: JP)
  Receive Date: 20180615
  Receipt Date: 20180626
  Transmission Date: 20180711
  Serious: Yes (Hospitalization, Other)
  Sender: FDA-Public Use
  Company Number: JP-MYLANLABS-2018M1041456

PATIENT
  Age: 77 Year
  Sex: Male

DRUGS (2)
  1. HEPARIN [Suspect]
     Active Substance: HEPARIN SODIUM
     Indication: ISCHAEMIC STROKE
     Route: 065
  2. ALTEPLASE. [Suspect]
     Active Substance: ALTEPLASE
     Indication: ISCHAEMIC STROKE
     Route: 042

REACTIONS (2)
  - Haemorrhage intracranial [Recovered/Resolved]
  - Cerebral hyperperfusion syndrome [Recovered/Resolved]
